FAERS Safety Report 5673917-8 (Version None)
Quarter: 2008Q2

REPORT INFORMATION
  Report Type: 
  Country: None (occurrence: None)
  Receive Date: 20080228
  Receipt Date: 20070122
  Transmission Date: 20081010
  Serious: Yes (Other)
  Sender: FDA-Public Use
  Company Number: US200609007113

PATIENT
  Age: 45 Year
  Sex: Male
  Weight: 124.7 kg

DRUGS (4)
  1. SYMBYAX [Suspect]
     Indication: BIPOLAR I DISORDER
     Dosage: ORAL
     Route: 048
     Dates: start: 20040601, end: 20060925
  2. XANAX XR (ALPRAZOLAM)   UNK [Concomitant]
  3. CLONAZEPAM (CLONAZEPAM)  UNK [Concomitant]
  4. METHADONE HCL [Concomitant]

REACTIONS (9)
  - ALANINE AMINOTRANSFERASE INCREASED [None]
  - ASPARTATE AMINOTRANSFERASE INCREASED [None]
  - BLOOD GLUCOSE INCREASED [None]
  - DIABETES MELLITUS [None]
  - FATIGUE [None]
  - HYPERLIPIDAEMIA [None]
  - OBESITY [None]
  - POLYDIPSIA [None]
  - POLYURIA [None]
